FAERS Safety Report 7608271-5 (Version None)
Quarter: 2011Q3

REPORT INFORMATION
  Report Type: 
  Country: None (occurrence: None)
  Receive Date: 20110714
  Receipt Date: 20110711
  Transmission Date: 20111222
  Serious: Yes (Other)
  Sender: FDA-Public Use
  Company Number: US-PFIZER INC-2011156399

PATIENT
  Sex: Female

DRUGS (3)
  1. LYRICA [Suspect]
     Indication: NERVE INJURY
     Dosage: UNK
     Route: 048
     Dates: start: 20050101
  2. METHADONE [Concomitant]
     Dosage: UNK
  3. LYRICA [Suspect]
     Indication: BURNING SENSATION

REACTIONS (2)
  - TOXICITY TO VARIOUS AGENTS [None]
  - MUSCLE TWITCHING [None]
